FAERS Safety Report 8254593-7 (Version None)
Quarter: 2012Q2

REPORT INFORMATION
  Report Type: 
  Country: None (occurrence: None)
  Receive Date: 20120403
  Receipt Date: 20120321
  Transmission Date: 20120825
  Serious: Yes (Other)
  Sender: FDA-Public Use
  Company Number: US-CELGENEUS-163-21880-12021304

PATIENT
  Sex: Male
  Weight: 158.9 kg

DRUGS (29)
  1. REVLIMID [Suspect]
     Dosage: 5 MILLIGRAM
     Route: 048
     Dates: start: 20111101, end: 20120101
  2. FILGRASTIM [Concomitant]
     Dosage: 480 MICROGRAM
     Route: 065
     Dates: start: 20111128
  3. LOVASTATIN [Concomitant]
     Dosage: 40 MILLIGRAM
     Route: 048
  4. METOCLOPRAMIDE [Concomitant]
     Dosage: 10 MILLIGRAM
     Route: 048
  5. ZOMETA [Concomitant]
     Dosage: 4MG/5ML
     Route: 050
  6. ROCEPHIN [Concomitant]
     Dosage: 1 GRAM
     Route: 041
  7. MELPHALAN HYDROCHLORIDE [Suspect]
     Dosage: 2 MILLIGRAM
     Route: 065
     Dates: start: 20110408
  8. ATENOLOL [Concomitant]
     Indication: BLOOD PRESSURE
     Dosage: 50 MILLIGRAM
     Route: 048
  9. ASPIRIN [Concomitant]
     Indication: PROPHYLAXIS
     Dosage: 81 MILLIGRAM
     Route: 048
  10. PREDNISONE TAB [Concomitant]
     Dosage: 50 MILLIGRAM
     Route: 048
  11. SOLU-MEDROL [Concomitant]
     Dosage: 2ML
     Route: 050
  12. REVLIMID [Suspect]
     Dosage: 10 MILLIGRAM
     Route: 048
     Dates: start: 20110701
  13. THALOMID [Suspect]
     Indication: MULTIPLE MYELOMA
     Route: 065
     Dates: start: 20040101, end: 20050101
  14. LISINOPRIL AND HYDROCHLOROTHIAZIDE [Concomitant]
     Dosage: 12.5 MILLIGRAM
     Route: 048
  15. NEUPOGEN [Concomitant]
     Dosage: 480MCG/1.6ML
     Route: 050
  16. CLOPIDOGREL [Concomitant]
     Dosage: 75 MILLIGRAM
     Route: 048
  17. THALOMID [Suspect]
     Dosage: DOSE INCREASED
     Route: 065
     Dates: start: 20060101, end: 20070101
  18. THALOMID [Suspect]
     Route: 065
     Dates: start: 20070101, end: 20080101
  19. ZOLPIDEM [Concomitant]
     Dosage: 10 MILLIGRAM
     Route: 048
  20. MELPHALAN HYDROCHLORIDE [Suspect]
     Dates: end: 20111121
  21. HYDROCODONE BITARTRATE AND ACETAMINOPHEN [Concomitant]
     Dosage: 7.5-500MG
     Route: 048
  22. WARFARIN SODIUM [Concomitant]
     Dosage: 1 MILLIGRAM
     Route: 048
  23. SODIUM CHLORIDE [Concomitant]
     Dosage: .9 PERCENT
     Route: 041
  24. REVLIMID [Suspect]
     Indication: MULTIPLE MYELOMA
     Dosage: 25 MILLIGRAM
     Route: 048
     Dates: start: 20080101
  25. REVLIMID [Suspect]
     Dosage: 15 MILLIGRAM
     Route: 048
     Dates: start: 20110408
  26. MUPIROCIN [Concomitant]
     Dosage: 2 PERCENT
     Route: 061
  27. MELPHALAN HYDROCHLORIDE [Suspect]
     Route: 065
     Dates: start: 20060101, end: 20070101
  28. NEUPOGEN [Concomitant]
     Dosage: 480MCG/0.8ML
     Route: 041
  29. KENALOG [Concomitant]
     Dosage: 40MG/ML
     Route: 050

REACTIONS (4)
  - WHITE BLOOD CELL COUNT DECREASED [None]
  - SQUAMOUS CELL CARCINOMA OF SKIN [None]
  - THROMBOCYTOPENIA [None]
  - BASAL CELL CARCINOMA [None]
